FAERS Safety Report 19382612 (Version 1)
Quarter: 2021Q2

REPORT INFORMATION
  Report Type: Spontaneous
  Country: US (occurrence: US)
  Receive Date: 20210607
  Receipt Date: 20210607
  Transmission Date: 20210717
  Serious: No
  Sender: FDA-Public Use
  Company Number: US-ASTRAZENECA-2021A462041

PATIENT
  Age: 28693 Day
  Sex: Female

DRUGS (1)
  1. TAGRISSO [Suspect]
     Active Substance: OSIMERTINIB
     Indication: LUNG DISORDER
     Route: 048
     Dates: start: 20201001

REACTIONS (2)
  - Respiratory tract irritation [Unknown]
  - Dyspnoea [Unknown]
